FAERS Safety Report 18421850 (Version 1)
Quarter: 2020Q4

REPORT INFORMATION
  Report Type: Report from Study
  Country: US (occurrence: US)
  Receive Date: 20201023
  Receipt Date: 20201023
  Transmission Date: 20210114
  Serious: Yes (Hospitalization)
  Sender: FDA-Public Use
  Company Number: US-LARKEN LABORATORIES, INC.-2093062

PATIENT
  Age: 55 Year
  Sex: Male
  Weight: 68.18 kg

DRUGS (1)
  1. DOXYCYCLINE HYCLATE TABLET [Suspect]
     Active Substance: DOXYCYCLINE HYCLATE
     Indication: CELLULITIS

REACTIONS (1)
  - Pancreatitis acute [Recovered/Resolved]
